FAERS Safety Report 9985067 (Version 1)
Quarter: 2014Q1

REPORT INFORMATION
  Report Type: Report from Study
  Country: US (occurrence: US)
  Receive Date: 20140307
  Receipt Date: 20140307
  Transmission Date: 20141002
  Serious: No
  Sender: FDA-Public Use
  Company Number: US-ABBVIE-13P-163-1184618-00

PATIENT
  Age: 21 Year
  Sex: Male

DRUGS (3)
  1. HUMIRA [Suspect]
     Indication: CROHN^S DISEASE
     Dates: start: 20131109
  2. IRON [Concomitant]
     Indication: ANAEMIA
  3. TYLENOL [Concomitant]
     Indication: HEADACHE

REACTIONS (3)
  - Waist circumference increased [Unknown]
  - Injection site pain [Not Recovered/Not Resolved]
  - Weight increased [Unknown]
